FAERS Safety Report 7627368-7 (Version None)
Quarter: 2011Q3

REPORT INFORMATION
  Report Type: 
  Country: None (occurrence: None)
  Receive Date: 20110721
  Receipt Date: 20110711
  Transmission Date: 20111222
  Serious: Yes (Hospitalization)
  Sender: FDA-Public Use
  Company Number: US-ELI_LILLY_AND_COMPANY-US201107004066

PATIENT
  Sex: Female

DRUGS (1)
  1. FORTEO [Suspect]
     Route: 065

REACTIONS (2)
  - STAPHYLOCOCCAL INFECTION [None]
  - PNEUMONIA [None]
